FAERS Safety Report 9778112 (Version 4)
Quarter: 2014Q2

REPORT INFORMATION
  Report Type: Report from Study
  Country: US (occurrence: US)
  Receive Date: 20131223
  Receipt Date: 20140430
  Transmission Date: 20141212
  Serious: Yes (Hospitalization)
  Sender: FDA-Public Use
  Company Number: US-JNJFOC-20131212145

PATIENT
  Age: 13 Year
  Sex: Female
  Weight: 55 kg

DRUGS (6)
  1. REMICADE [Suspect]
     Indication: INFLAMMATORY BOWEL DISEASE
     Route: 042
     Dates: start: 20121030
  2. MULTIVITAMINS [Concomitant]
     Route: 065
  3. FERREX [Concomitant]
     Route: 065
  4. 5-ASA [Concomitant]
     Route: 048
  5. VITAMIN D [Concomitant]
     Route: 065
  6. AZATHIOPRINE [Concomitant]
     Route: 065

REACTIONS (1)
  - Anorectal stenosis [Recovered/Resolved]
